FAERS Safety Report 16361344 (Version 1)
Quarter: 2019Q3

REPORT INFORMATION
  Report Type: Spontaneous
  Country: US (occurrence: US)
  Receive Date: 20190524
  Receipt Date: 20190524
  Transmission Date: 20191004
  Serious: Yes (Life-Threatening)
  Sender: FDA-Public Use
  Company Number: None

PATIENT
  Age: 32 Year
  Sex: Male
  Weight: 137.25 kg

DRUGS (3)
  1. TRULANCE [Suspect]
     Active Substance: PLECANATIDE
     Indication: CONSTIPATION
     Dates: start: 20190515, end: 20190516
  2. MAGNESIUM CITRATE. [Concomitant]
     Active Substance: MAGNESIUM CITRATE
  3. MAGESIUM HYDROXIDE [Concomitant]

REACTIONS (4)
  - Dyspepsia [None]
  - Dysphagia [None]
  - Adverse event [None]
  - Paradoxical drug reaction [None]

NARRATIVE: CASE EVENT DATE: 20190516
